FAERS Safety Report 16783497 (Version 2)
Quarter: 2019Q3

REPORT INFORMATION
  Report Type: Spontaneous
  Country: TN (occurrence: TN)
  Receive Date: 20190907
  Receipt Date: 20190926
  Transmission Date: 20191005
  Serious: Yes (Other)
  Sender: FDA-Public Use
  Company Number: TN-MACLEODS PHARMACEUTICALS US LTD-MAC2019022828

PATIENT

DRUGS (1)
  1. CELECOXIB 200MG CAPSULE [Suspect]
     Active Substance: CELECOXIB
     Indication: DYSMENORRHOEA
     Dosage: INIBREX, 200 MILLIGRAM CAPSULES, BID
     Route: 048

REACTIONS (3)
  - Dermatitis bullous [Recovered/Resolved]
  - Type IV hypersensitivity reaction [Recovered/Resolved]
  - Fixed eruption [Recovered/Resolved]
